FAERS Safety Report 19764427 (Version 1)
Quarter: 2021Q3

REPORT INFORMATION
  Report Type: Spontaneous
  Country: IT (occurrence: IT)
  Receive Date: 20210830
  Receipt Date: 20210830
  Transmission Date: 20211014
  Serious: Yes (Hospitalization, Other)
  Sender: FDA-Public Use
  Company Number: IT-PFIZER INC-202101109898

PATIENT
  Age: 57 Year
  Sex: Male

DRUGS (4)
  1. OLMESARTAN MEDOXOMIL AND HYDROCHLOROTHIAZIDE [Concomitant]
     Active Substance: HYDROCHLOROTHIAZIDE\OLMESARTAN MEDOXOMIL
     Dosage: UNK
     Route: 065
  2. ALLOPURINOL. [Concomitant]
     Active Substance: ALLOPURINOL
     Dosage: UNK
     Route: 065
  3. MEKTOVI [Suspect]
     Active Substance: BINIMETINIB
     Indication: MELANOMA RECURRENT
     Dosage: 15 MG, UNK
     Route: 048
     Dates: start: 20210101
  4. BRAFTOVI [Suspect]
     Active Substance: ENCORAFENIB
     Indication: MELANOMA RECURRENT
     Dosage: 75 MG, UNK
     Route: 048
     Dates: start: 20210101

REACTIONS (2)
  - Rhabdomyolysis [Recovered/Resolved with Sequelae]
  - Acute kidney injury [Recovered/Resolved with Sequelae]

NARRATIVE: CASE EVENT DATE: 20210722
